FAERS Safety Report 5165125-4 (Version None)
Quarter: 2006Q4

REPORT INFORMATION
  Report Type: 
  Country: None (occurrence: None)
  Receive Date: 20061127
  Receipt Date: 20061115
  Transmission Date: 20070319
  Serious: Yes (Life-Threatening)
  Sender: FDA-Public Use
  Company Number: HQWYE740116NOV06

PATIENT
  Age: 84 Year
  Sex: Female

DRUGS (8)
  1. AVLOCARDYL (PROPRANOLOL HYDROCHLORIDE, TABLET) [Suspect]
     Dosage: 20 MG 1X PER 1 DAY ORAL
     Route: 048
  2. PERINDOPRIL ERBUMINE [Suspect]
     Dosage: 4 MG 1X PER 1 DAY ORAL
     Route: 048
  3. PAROXETINE HYDROCHLORIDE [Suspect]
     Dosage: 20 MG 1X PER 1 DAY ORAL
     Route: 048
  4. POTASSIUM CHLORIDE [Suspect]
  5. FORLAX (MACROGOL) [Suspect]
  6. INIPOMP (PANTOPRAZOLE, TABLET, DELAYED RELEASE) [Suspect]
     Dosage: 40 MG 1X PER 1 DAY ORAL
     Route: 048
  7. MOTILIUM [Suspect]
     Indication: NAUSEA
     Dosage: ORAL
     Route: 048
  8. NEO-MERCAZOLE TAB [Suspect]
     Indication: HYPERTHYROIDISM
     Dosage: 20 MG 1X PER 1 DAY ORAL
     Route: 048
     Dates: start: 20061001, end: 20061018

REACTIONS (2)
  - ANAEMIA [None]
  - LEUKOPENIA [None]
